FAERS Safety Report 8526203 (Version 4)
Quarter: 2012Q4

REPORT INFORMATION
  Report Type: Report from Study
  Country: CN (occurrence: CN)
  Receive Date: 20120423
  Receipt Date: 20121107
  Transmission Date: 20130627
  Serious: Yes (Hospitalization)
  Sender: FDA-Public Use
  Company Number: CN-TEVA-334347ISR

PATIENT
  Age: 56 Year
  Sex: Male
  Weight: 81 kg

DRUGS (8)
  1. RASAGILINE MESILATE [Suspect]
     Indication: PARKINSON^S DISEASE
     Dosage: 1 mg or placebo
     Dates: start: 20120105, end: 20120425
  2. MADOPAR [Concomitant]
     Indication: PARKINSON^S DISEASE
     Dosage: 1st dose
     Route: 048
     Dates: start: 20111021
  3. SINEMET [Concomitant]
     Indication: PARKINSON^S DISEASE
     Dosage: 1st dose
     Route: 048
     Dates: start: 20111012, end: 20120326
  4. SINEMET [Concomitant]
     Dosage: 2nd dose
     Route: 048
     Dates: start: 20111021
  5. SINEMET [Concomitant]
     Dosage: 3rd dose
     Route: 048
     Dates: start: 20111021
  6. SINEMET [Concomitant]
     Dosage: 1st dose
     Route: 048
     Dates: start: 20120327
  7. ENTACAPONE [Concomitant]
     Indication: PARKINSON^S DISEASE
     Dosage: 200 Milligram Daily;
     Route: 048
     Dates: start: 2010
  8. PIRIBEDIL SUSTAINED RELEASE TABLETS [Concomitant]
     Indication: PARKINSON^S DISEASE
     Dosage: 150 Milligram Daily;
     Route: 048
     Dates: start: 2011

REACTIONS (1)
  - Parkinson^s disease [Recovered/Resolved]
